FAERS Safety Report 9181259 (Version 1)
Quarter: 2013Q1

REPORT INFORMATION
  Report Type: Spontaneous
  Country: US (occurrence: US)
  Receive Date: 20130322
  Receipt Date: 20130322
  Transmission Date: 20140127
  Serious: No
  Sender: FDA-Public Use
  Company Number: GB-MYLANLABS-2012S1025193

PATIENT
  Sex: Female

DRUGS (1)
  1. EMSAM [Suspect]

REACTIONS (3)
  - Energy increased [Not Recovered/Not Resolved]
  - Apathy [None]
  - Fatigue [None]
